FAERS Safety Report 24341457 (Version 1)
Quarter: 2024Q3

REPORT INFORMATION
  Report Type: Spontaneous
  Country: US (occurrence: US)
  Receive Date: 20240920
  Receipt Date: 20240920
  Transmission Date: 20241016
  Serious: No
  Sender: NOVARTIS
  Company Number: US-002147023-NVSC2024US187444

PATIENT
  Age: 11 Year
  Sex: Female
  Weight: 76.203 kg

DRUGS (1)
  1. COSENTYX [Suspect]
     Active Substance: SECUKINUMAB
     Indication: Hidradenitis
     Dosage: 150 MILLIGRAM PER MILLILITRE
     Route: 058

REACTIONS (2)
  - Adverse drug reaction [Unknown]
  - Off label use [Unknown]
